FAERS Safety Report 7493670-5 (Version None)
Quarter: 2011Q2

REPORT INFORMATION
  Report Type: 
  Country: None (occurrence: None)
  Receive Date: 20110520
  Receipt Date: 20110519
  Transmission Date: 20111010
  Serious: Yes (Other)
  Sender: FDA-Public Use
  Company Number: CO-PFIZER INC-2010142681

PATIENT
  Age: 77 Year
  Sex: Male

DRUGS (1)
  1. CARDURA [Suspect]
     Dosage: UNK

REACTIONS (1)
  - PROSTATE EXAMINATION ABNORMAL [None]
